FAERS Safety Report 16425309 (Version 1)
Quarter: 2019Q2

REPORT INFORMATION
  Report Type: Spontaneous
  Country: GB (occurrence: GB)
  Receive Date: 20190613
  Receipt Date: 20190613
  Transmission Date: 20190711
  Serious: Yes (Hospitalization)
  Sender: FDA-Public Use
  Company Number: GB-MYLANLABS-2019M1054117

PATIENT
  Age: 13 Year
  Sex: Female

DRUGS (1)
  1. CARBAMAZEPINE. [Suspect]
     Active Substance: CARBAMAZEPINE
     Indication: EPILEPSY
     Dosage: 800 MILLIGRAM, TID
     Route: 065

REACTIONS (3)
  - Pemphigus [Recovered/Resolved]
  - Blister [Recovered/Resolved]
  - Erythema [Recovered/Resolved]
